FAERS Safety Report 19992201 (Version 8)
Quarter: 2022Q1

REPORT INFORMATION
  Report Type: Report from Study
  Country: US (occurrence: US)
  Receive Date: 20211026
  Receipt Date: 20220219
  Transmission Date: 20220423
  Serious: Yes (Other)
  Sender: FDA-Public Use
  Company Number: NVSC2021US240674

PATIENT
  Age: 26 Year
  Sex: Male
  Weight: 169.19 kg

DRUGS (16)
  1. COSENTYX [Suspect]
     Active Substance: SECUKINUMAB
     Indication: Hidradenitis
     Dosage: 300 MG, Q4W
     Route: 058
     Dates: start: 20200615
  2. SECUKINUMAB [Suspect]
     Active Substance: SECUKINUMAB
     Indication: Hidradenitis
     Dosage: 300 MG, Q2W
     Route: 058
     Dates: start: 20210614, end: 20211018
  3. SECUKINUMAB [Suspect]
     Active Substance: SECUKINUMAB
     Dosage: 300 MG, Q2W
     Route: 058
     Dates: start: 20211213
  4. ASPIRIN [Concomitant]
     Active Substance: ASPIRIN
     Indication: Migraine
     Dosage: UNK
     Route: 065
     Dates: start: 2010
  5. FISH OIL [Concomitant]
     Active Substance: FISH OIL
     Indication: General physical condition
     Dosage: UNK
     Route: 065
     Dates: start: 20181118
  6. NICOTINAMIDE [Concomitant]
     Active Substance: NIACINAMIDE
     Indication: Hidradenitis
     Dosage: UNK
     Route: 065
     Dates: start: 201811
  7. METFORMIN [Concomitant]
     Active Substance: METFORMIN HYDROCHLORIDE
     Indication: Hidradenitis
     Dosage: UNK
     Route: 065
     Dates: start: 201811
  8. FINASTERIDE [Concomitant]
     Active Substance: FINASTERIDE
     Indication: Hidradenitis
     Dosage: UNK
     Route: 065
     Dates: start: 201811
  9. TYLENOL [Concomitant]
     Active Substance: ACETAMINOPHEN
     Indication: Hidradenitis
     Dosage: UNK
     Route: 065
     Dates: start: 2010
  10. TYLENOL [Concomitant]
     Active Substance: ACETAMINOPHEN
     Indication: Migraine
  11. HERBALS\TURMERIC [Concomitant]
     Active Substance: HERBALS\TURMERIC
     Indication: General physical condition
     Dosage: UNK
     Route: 065
     Dates: start: 20181118
  12. ZINC GLUCONATE [Concomitant]
     Active Substance: ZINC GLUCONATE
     Indication: General physical condition
     Dosage: UNK
     Route: 065
     Dates: start: 20181118
  13. VITAMIN D3 [Concomitant]
     Active Substance: CHOLECALCIFEROL
     Indication: General physical condition
     Dosage: UNK
     Route: 065
     Dates: start: 20181118
  14. VITAMIN C [Concomitant]
     Active Substance: ASCORBIC ACID
     Indication: General physical condition
     Dosage: UNK
     Route: 065
     Dates: start: 20181118
  15. ALBUTEROL [Concomitant]
     Active Substance: ALBUTEROL
     Indication: Asthma
     Dosage: UNK
     Route: 065
     Dates: start: 2004
  16. PROAIR HFA [Concomitant]
     Active Substance: ALBUTEROL SULFATE
     Indication: Asthma
     Dosage: UNK
     Route: 065
     Dates: start: 2004

REACTIONS (2)
  - Abscess [Recovered/Resolved]
  - Cellulitis [Recovered/Resolved]

NARRATIVE: CASE EVENT DATE: 20211014
